FAERS Safety Report 8998057 (Version 1)
Quarter: 2013Q1

REPORT INFORMATION
  Report Type: Report from Study
  Country: DE (occurrence: DE)
  Receive Date: 20130104
  Receipt Date: 20130104
  Transmission Date: 20140127
  Serious: Yes (Death, Hospitalization)
  Sender: FDA-Public Use
  Company Number: DE-ACTELION-A-US2012-77163

PATIENT
  Age: 68 Year
  Sex: Female

DRUGS (2)
  1. VENTAVIS [Suspect]
     Indication: PULMONARY ARTERIAL HYPERTENSION
     Dosage: UNK UNK, Q4HRS
     Route: 055
     Dates: start: 20110628
  2. REVATIO [Concomitant]
     Dosage: 20 MG, UNK

REACTIONS (2)
  - Death [Fatal]
  - Surgery [Not Recovered/Not Resolved]
